FAERS Safety Report 20856044 (Version 1)
Quarter: 2022Q2

REPORT INFORMATION
  Report Type: Spontaneous
  Country: AU (occurrence: AU)
  Receive Date: 20220520
  Receipt Date: 20220520
  Transmission Date: 20220721
  Serious: Yes (Hospitalization)
  Sender: FDA-Public Use
  Company Number: AU-PFIZER INC-202101070074

PATIENT
  Sex: Female

DRUGS (1)
  1. SOLU-CORTEF [Suspect]
     Active Substance: HYDROCORTISONE SODIUM SUCCINATE
     Indication: Hypothalamo-pituitary disorder
     Dosage: UNK

REACTIONS (4)
  - Product dose omission issue [Unknown]
  - Product solubility abnormal [Unknown]
  - Hypothalamo-pituitary disorder [Unknown]
  - Condition aggravated [Unknown]
